FAERS Safety Report 7216996-9 (Version None)
Quarter: 2011Q1

REPORT INFORMATION
  Report Type: 
  Country: None (occurrence: None)
  Receive Date: 20110110
  Receipt Date: 20100930
  Transmission Date: 20110831
  Serious: No
  Sender: FDA-Public Use
  Company Number: A0884758A

PATIENT
  Age: 64 Year
  Sex: Male

DRUGS (2)
  1. LEVODOPA [Concomitant]
  2. REQUIP XL [Suspect]
     Indication: PARKINSON'S DISEASE
     Dosage: 8MG PER DAY
     Route: 048

REACTIONS (1)
  - ILL-DEFINED DISORDER [None]
